FAERS Safety Report 17002128 (Version 1)
Quarter: 2019Q4

REPORT INFORMATION
  Report Type: Spontaneous
  Country: US (occurrence: US)
  Receive Date: 20191106
  Receipt Date: 20191106
  Transmission Date: 20200122
  Serious: No
  Sender: FDA-Public Use
  Company Number: US-ROCHE-2236124

PATIENT
  Sex: Male
  Weight: 63.56 kg

DRUGS (6)
  1. PULMOZYME [Suspect]
     Active Substance: DORNASE ALFA
     Indication: PRODUCT USED FOR UNKNOWN INDICATION
     Dosage: DOSE: 1MG; ONGOING: UNKNOWN; VIA NEBULIZER
     Route: 065
     Dates: start: 20170822
  2. PULMOZYME [Suspect]
     Active Substance: DORNASE ALFA
     Dosage: ONGOING: UNKNOWN
     Route: 065
     Dates: start: 20171104
  3. CREON [Concomitant]
     Active Substance: PANCRELIPASE AMYLASE\PANCRELIPASE LIPASE\PANCRELIPASE PROTEASE
     Dosage: ONGOING: UNKNOWN
     Route: 048
     Dates: start: 20171104
  4. OMEPRAZOLE. [Concomitant]
     Active Substance: OMEPRAZOLE
     Dosage: ONGOING: UNKNOWN
     Route: 048
     Dates: start: 20171104
  5. ALBUTEROL SULFATE. [Concomitant]
     Active Substance: ALBUTEROL SULFATE
     Dosage: ONGOING: UNKNOWN
     Route: 065
     Dates: start: 20171104
  6. FLONASE [Concomitant]
     Active Substance: FLUTICASONE PROPIONATE
     Dosage: ONGOING: UNKNOWN
     Route: 045
     Dates: start: 20171104

REACTIONS (2)
  - Product dose omission [Unknown]
  - No adverse event [Unknown]
